FAERS Safety Report 4338362-6 (Version None)
Quarter: 2004Q2

REPORT INFORMATION
  Report Type: 
  Country: None (occurrence: None)
  Receive Date: 20040414
  Receipt Date: 20040406
  Transmission Date: 20050107
  Serious: Yes (Other)
  Sender: FDA-Public Use
  Company Number: 200412618US

PATIENT
  Sex: Female

DRUGS (3)
  1. LANTUS [Suspect]
     Indication: DIABETES MELLITUS
     Dosage: DOSE UNIT: UNITS
     Route: 058
     Dates: end: 20040308
  2. HUMULIN 70/30 [Concomitant]
     Dosage: DOSE: UNK
  3. GLUCOPHAGE [Concomitant]
     Dosage: DOSE: UNK

REACTIONS (4)
  - CAUDAL REGRESSION SYNDROME [None]
  - COMPLICATIONS OF MATERNAL EXPOSURE TO THERAPEUTIC DRUGS [None]
  - GLYCOSYLATED HAEMOGLOBIN INCREASED [None]
  - MATERNAL DRUGS AFFECTING FOETUS [None]
